FAERS Safety Report 8260122-4 (Version None)
Quarter: 2012Q2

REPORT INFORMATION
  Report Type: 
  Country: None (occurrence: None)
  Receive Date: 20120404
  Receipt Date: 20120328
  Transmission Date: 20120825
  Serious: Yes (Hospitalization)
  Sender: FDA-Public Use
  Company Number: US-JNJFOC-20120314269

PATIENT
  Sex: Female
  Weight: 72.58 kg

DRUGS (8)
  1. UNKNOWN MEDICATION [Suspect]
     Indication: PAIN
  2. CRESTOR [Concomitant]
     Indication: BLOOD CHOLESTEROL ABNORMAL
     Dates: start: 20080101
  3. PREMARIN [Concomitant]
     Indication: HORMONE REPLACEMENT THERAPY
     Route: 048
     Dates: start: 20000101
  4. METHOTREXATE [Concomitant]
     Indication: RHEUMATOID ARTHRITIS
     Route: 048
     Dates: start: 20090101, end: 20110101
  5. METOPROLOL TARTRATE [Concomitant]
     Indication: BLOOD PRESSURE ABNORMAL
     Dates: start: 20080101
  6. OMEPRAZOLE [Concomitant]
     Indication: HIATUS HERNIA
     Route: 048
     Dates: start: 20060101
  7. SIMPONI [Suspect]
     Indication: RHEUMATOID ARTHRITIS
     Route: 058
     Dates: start: 20090101
  8. UNKNOWN MEDICATION [Concomitant]
     Indication: BLOOD PRESSURE ABNORMAL
     Route: 048
     Dates: start: 20080101

REACTIONS (8)
  - DEVICE FAILURE [None]
  - DRUG DOSE OMISSION [None]
  - STRESS AT WORK [None]
  - CYST [None]
  - ROAD TRAFFIC ACCIDENT [None]
  - CHEST PAIN [None]
  - LOWER LIMB FRACTURE [None]
  - CONFUSIONAL STATE [None]
